FAERS Safety Report 18611806 (Version 1)
Quarter: 2020Q4

REPORT INFORMATION
  Report Type: Spontaneous
  Country: DE (occurrence: DE)
  Receive Date: 20201214
  Receipt Date: 20201214
  Transmission Date: 20210114
  Serious: Yes (Hospitalization, Congenital Anomaly)
  Sender: FDA-Public Use
  Company Number: DE-TEVA-2020-DE-1856444

PATIENT
  Age: 52 Year
  Sex: Female
  Weight: 75 kg

DRUGS (1)
  1. TAMOXIFEN [Suspect]
     Active Substance: TAMOXIFEN
     Indication: BREAST CANCER
     Route: 048
     Dates: start: 201609, end: 202003

REACTIONS (3)
  - Hepatic enzyme increased [Unknown]
  - Dilatation intrahepatic duct congenital [Unknown]
  - Hepatitis toxic [Unknown]

NARRATIVE: CASE EVENT DATE: 2018
